FAERS Safety Report 15953957 (Version 1)
Quarter: 2019Q1

REPORT INFORMATION
  Report Type: Spontaneous
  Country: HR (occurrence: HR)
  Receive Date: 20190212
  Receipt Date: 20190212
  Transmission Date: 20190417
  Serious: Yes (Other)
  Sender: FDA-Public Use
  Company Number: HR-MYLANLABS-2019M1011706

PATIENT
  Age: 43 Year
  Sex: Female

DRUGS (2)
  1. PREDNISONE. [Suspect]
     Active Substance: PREDNISONE
     Indication: BEHCET^S SYNDROME
     Dosage: 0.2-0.5 MG/KG, UNK
     Route: 048
  2. CICLOSPORIN [Suspect]
     Active Substance: CYCLOSPORINE
     Indication: BEHCET^S SYNDROME
     Dosage: 2 MG/KG, UNK
     Route: 065

REACTIONS (12)
  - Erythema nodosum [Unknown]
  - Cushing^s syndrome [Unknown]
  - Cataract [Unknown]
  - Blood pressure increased [Recovered/Resolved]
  - Drug ineffective [Unknown]
  - Nephropathy toxic [Unknown]
  - Body temperature increased [Unknown]
  - Behcet^s syndrome [Recovering/Resolving]
  - Dermatitis acneiform [Unknown]
  - Depression [Unknown]
  - Mouth ulceration [Unknown]
  - Disease recurrence [Recovering/Resolving]
